FAERS Safety Report 8410320-1 (Version None)
Quarter: 2012Q2

REPORT INFORMATION
  Report Type: 
  Country: None (occurrence: None)
  Receive Date: 20120605
  Receipt Date: 20120530
  Transmission Date: 20120825
  Serious: No
  Sender: FDA-Public Use
  Company Number: US-BAYER-2012-051780

PATIENT
  Age: 28 Year
  Sex: Female

DRUGS (3)
  1. MIRENA [Suspect]
     Dosage: 20 MCG/24HR, CONT
     Route: 015
     Dates: start: 20120501, end: 20120501
  2. UNKNOWN DRUG [Concomitant]
     Indication: UTERINE CERVIX DILATION PROCEDURE
  3. MIRENA [Suspect]
     Indication: CONTRACEPTION
     Dosage: 20 MCG/24HR, CONT
     Route: 015
     Dates: start: 20120523, end: 20120523

REACTIONS (3)
  - DEVICE EXPULSION [None]
  - PROCEDURAL PAIN [None]
  - DEVICE DIFFICULT TO USE [None]
